FAERS Safety Report 7340432-5 (Version None)
Quarter: 2011Q1

REPORT INFORMATION
  Report Type: 
  Country: None (occurrence: None)
  Receive Date: 20110309
  Receipt Date: 20110301
  Transmission Date: 20110831
  Serious: Yes (Other)
  Sender: FDA-Public Use
  Company Number: JP-JNJFOC-20101208441

PATIENT
  Sex: Female
  Weight: 64 kg

DRUGS (8)
  1. CONCERTA [Suspect]
     Route: 048
  2. CONCERTA [Suspect]
     Route: 048
  3. CONCERTA [Suspect]
     Route: 048
  4. CONCERTA [Suspect]
     Indication: ATTENTION DEFICIT/HYPERACTIVITY DISORDER
     Route: 048
  5. CONCERTA [Suspect]
     Route: 048
  6. CONCERTA [Suspect]
     Route: 048
  7. CONCERTA [Suspect]
     Route: 048
  8. CONCERTA [Suspect]
     Route: 048

REACTIONS (7)
  - MANIA [None]
  - SOLILOQUY [None]
  - REGRESSIVE BEHAVIOUR [None]
  - DRUG INEFFECTIVE [None]
  - HALLUCINATION, AUDITORY [None]
  - EUPHORIC MOOD [None]
  - DECREASED APPETITE [None]
